FAERS Safety Report 17440574 (Version 1)
Quarter: 2020Q1

REPORT INFORMATION
  Report Type: Spontaneous
  Country: US (occurrence: US)
  Receive Date: 20200205
  Receipt Date: 20200205
  Transmission Date: 20200409
  Serious: No
  Sender: FDA-Public Use
  Company Number: None

PATIENT
  Age: 52 Year
  Sex: Female

DRUGS (2)
  1. TOBRAMYCIN 300MG/5 ML [Suspect]
     Active Substance: TOBRAMYCIN
     Indication: CYSTIC FIBROSIS
     Dosage: ?          OTHER DOSE:300MG/4ML;OTHER ROUTE:INHALATION?
     Dates: start: 20190726
  2. PULMOZYME [Suspect]
     Active Substance: DORNASE ALFA
     Indication: CYSTIC FIBROSIS
     Dosage: ?          OTHER ROUTE:INHALATION?
     Dates: start: 20171104

REACTIONS (2)
  - Limb operation [None]
  - Dizziness postural [None]

NARRATIVE: CASE EVENT DATE: 202001
